FAERS Safety Report 5443440-4 (Version None)
Quarter: 2007Q3

REPORT INFORMATION
  Report Type: 
  Country: None (occurrence: None)
  Receive Date: 20070905
  Receipt Date: 20070829
  Transmission Date: 20080115
  Serious: Yes (Hospitalization, Disabling)
  Sender: FDA-Public Use
  Company Number: DE-ASTRAZENECA-2007PK01640

PATIENT
  Age: 1026 Month
  Sex: Male
  Weight: 82 kg

DRUGS (6)
  1. SYMBICORT [Suspect]
     Indication: ASTHMA
     Dosage: 160/4.5
     Route: 055
  2. AARANE N [Suspect]
     Indication: ASTHMA
  3. OMEPRAZOL NT [Concomitant]
     Indication: REFLUX OESOPHAGITIS
     Dosage: CA BID
  4. CONCOR [Concomitant]
     Indication: CORONARY ARTERY DISEASE
  5. CONCOR [Concomitant]
     Indication: STENT PLACEMENT
  6. OXAZEPAM [Concomitant]
     Indication: SLEEP DISORDER

REACTIONS (4)
  - DEPRESSION [None]
  - DIZZINESS [None]
  - LARYNGEAL OEDEMA [None]
  - VOCAL CORD PARALYSIS [None]
